FAERS Safety Report 7798276-6 (Version None)
Quarter: 2011Q4

REPORT INFORMATION
  Report Type: 
  Country: None (occurrence: None)
  Receive Date: 20111005
  Receipt Date: 20110928
  Transmission Date: 20120403
  Serious: Yes (Hospitalization)
  Sender: FDA-Public Use
  Company Number: JP-CEPHALON-2011005034

PATIENT
  Sex: Female
  Weight: 43 kg

DRUGS (10)
  1. IRSOGLADINE MALEATE [Concomitant]
  2. ATENOLOL [Concomitant]
  3. MOSAPRIDE CITRATE [Concomitant]
  4. ZOLPIDEM TARTRATE [Concomitant]
  5. AMLODIPINE BESYLATE [Concomitant]
  6. BIFIDOBACTERIUM BIFIDUM [Concomitant]
  7. LANSOPRAZOLE [Concomitant]
  8. BENDAMUSTINE HCL [Suspect]
     Indication: DIFFUSE LARGE B-CELL LYMPHOMA REFRACTORY
     Route: 042
     Dates: start: 20110715
  9. RITUXIMAB [Suspect]
     Indication: DIFFUSE LARGE B-CELL LYMPHOMA REFRACTORY
     Route: 042
  10. ETIZOLAM [Concomitant]

REACTIONS (2)
  - SHOCK HAEMORRHAGIC [None]
  - PNEUMONIA [None]
